FAERS Safety Report 8041558-3 (Version None)
Quarter: 2012Q1

REPORT INFORMATION
  Report Type: 
  Country: None (occurrence: None)
  Receive Date: 20120112
  Receipt Date: 20120105
  Transmission Date: 20120608
  Serious: Yes (Other)
  Sender: FDA-Public Use
  Company Number: US-JNJFOC-20111103672

PATIENT
  Age: 23 Year
  Sex: Male
  Weight: 73.94 kg

DRUGS (4)
  1. VISINE EYE DROPS [Suspect]
     Indication: PRURITUS
     Dosage: 2 DROPS IN EACH EYE 1X ONLY
     Route: 047
     Dates: start: 20111019, end: 20111019
  2. VISINE EYE DROPS [Suspect]
     Indication: EYE IRRITATION
     Dosage: 2 DROPS IN EACH EYE 1X ONLY
     Route: 047
     Dates: start: 20111019, end: 20111019
  3. VISINE EYE DROPS [Suspect]
     Indication: ERYTHEMA
     Dosage: 2 DROPS IN EACH EYE 1X ONLY
     Route: 047
     Dates: start: 20111019, end: 20111019
  4. ALBUTEROL [Concomitant]
     Indication: ASTHMA
     Dosage: FOR EIGHT YEARS
     Route: 065
     Dates: start: 20030101

REACTIONS (1)
  - EYE SWELLING [None]
